FAERS Safety Report 7142170-0 (Version None)
Quarter: 2010Q4

REPORT INFORMATION
  Report Type: 
  Country: None (occurrence: None)
  Receive Date: 20101112
  Receipt Date: 20100921
  Transmission Date: 20110411
  Serious: No
  Sender: FDA-Public Use
  Company Number: 1000016369

PATIENT
  Age: 63 Year
  Sex: Female

DRUGS (14)
  1. SAVELLA [Suspect]
     Indication: FIBROMYALGIA
     Dosage: 12.5 MG (12.5 MG, 1 IN 1 D), ORAL; 25 MG (12.5 MG, 2 IN 1 D), ORAL; 50 MG (25 MG, 2 IN 1 D), ORAL
     Route: 048
     Dates: start: 20100908, end: 20100909
  2. SAVELLA [Suspect]
     Indication: FIBROMYALGIA
     Dosage: 12.5 MG (12.5 MG, 1 IN 1 D), ORAL; 25 MG (12.5 MG, 2 IN 1 D), ORAL; 50 MG (25 MG, 2 IN 1 D), ORAL
     Route: 048
     Dates: start: 20100910, end: 20100913
  3. SAVELLA [Suspect]
     Indication: FIBROMYALGIA
     Dosage: 12.5 MG (12.5 MG, 1 IN 1 D), ORAL; 25 MG (12.5 MG, 2 IN 1 D), ORAL; 50 MG (25 MG, 2 IN 1 D), ORAL
     Route: 048
     Dates: start: 20100914
  4. PAXIL [Suspect]
     Indication: PAIN
     Dosage: 30 MG (30 MG, 1 IN 1 D), ORAL; 15 MG (15 MG, 1 IN 1 D), ORAL
     Route: 048
     Dates: end: 20100907
  5. PAXIL [Suspect]
     Indication: PAIN
     Dosage: 30 MG (30 MG, 1 IN 1 D), ORAL; 15 MG (15 MG, 1 IN 1 D), ORAL
     Route: 048
     Dates: start: 20100908, end: 20100914
  6. MAXZIDE (TRIAMTERENE, HYDROCHLOROTHIAZIDE) (TRIAMTERENE, HYDROCHLOROTH [Concomitant]
  7. LISINOPRIL (LISINOPRIL) (TABLETS) (LISINOPRIL) [Concomitant]
  8. AMLODIPINE [Concomitant]
  9. BISOPROLOL FUMARATE (BISOPROLOL FUMARATE) (BISOPROLOL FUMARATE) [Concomitant]
  10. SIMVASTATIN [Concomitant]
  11. CYCLOBENZAPRINE (CYCLOBENZAPRINE) (10 MILLIGRAM) (CYCLOBENZAPRINE) [Concomitant]
  12. AVANDIA (ROSIGLITAZONE MALEATE) (4 MILLIGRAM) (ROSIGLITAZONE MALEATE) [Concomitant]
  13. PRILOSEC (OMEPRAZOLE) (20 MILLIGRAM) (OMEPRAZOLE) [Concomitant]
  14. LORTAB (HYDROCODONE BITARTRATE, ACETAMINOPHEN) (TABLETS) (HYDROCODONE [Concomitant]

REACTIONS (3)
  - CRYING [None]
  - IRRITABILITY [None]
  - TREMOR [None]
